FAERS Safety Report 8284389-1 (Version None)
Quarter: 2012Q2

REPORT INFORMATION
  Report Type: 
  Country: None (occurrence: None)
  Receive Date: 20120413
  Receipt Date: 20120215
  Transmission Date: 20120825
  Serious: No
  Sender: FDA-Public Use
  Company Number: US-ASTRAZENECA-2012SE05640

PATIENT
  Age: 62 Year
  Sex: Male
  Weight: 106.6 kg

DRUGS (10)
  1. FOSAMAX [Concomitant]
  2. PRILOSEC [Suspect]
     Indication: GASTROOESOPHAGEAL REFLUX DISEASE
     Route: 048
  3. OMEPRAZOLE [Concomitant]
  4. GABAPENTIN [Concomitant]
  5. VITAMIN TAB [Concomitant]
  6. PROPRANOLOL [Concomitant]
  7. PRAVASTATIN [Concomitant]
  8. MELOXICAN [Concomitant]
  9. ENALAPRIL MALEATE [Concomitant]
  10. NEXIUM [Suspect]
     Indication: GASTROOESOPHAGEAL REFLUX DISEASE
     Route: 048

REACTIONS (8)
  - ORTHOSIS USER [None]
  - ARTHROPATHY [None]
  - SELF-MEDICATION [None]
  - DRUG INEFFECTIVE [None]
  - CHEST DISCOMFORT [None]
  - CHEST PAIN [None]
  - GASTROOESOPHAGEAL REFLUX DISEASE [None]
  - WRONG DRUG ADMINISTERED [None]
